FAERS Safety Report 7031176-8 (Version None)
Quarter: 2010Q4

REPORT INFORMATION
  Report Type: 
  Country: None (occurrence: None)
  Receive Date: 20101006
  Receipt Date: 20100922
  Transmission Date: 20110411
  Serious: Yes (Hospitalization)
  Sender: FDA-Public Use
  Company Number: GB-MYLANLABS-2010S1017812

PATIENT
  Age: 65 Year
  Sex: Male

DRUGS (2)
  1. CLARITHROMYCIN [Suspect]
     Indication: COUGH
     Route: 065
  2. CLARITHROMYCIN [Suspect]
     Indication: PNEUMONIA
     Route: 065

REACTIONS (6)
  - EOSINOPHIL COUNT INCREASED [None]
  - GLOMERULONEPHRITIS MINIMAL LESION [None]
  - OEDEMA PERIPHERAL [None]
  - PNEUMONITIS [None]
  - RASH [None]
  - TUBULOINTERSTITIAL NEPHRITIS [None]
